FAERS Safety Report 7603734-0 (Version None)
Quarter: 2011Q3

REPORT INFORMATION
  Report Type: 
  Country: None (occurrence: None)
  Receive Date: 20110712
  Receipt Date: 20110620
  Transmission Date: 20111222
  Serious: Yes (Hospitalization)
  Sender: FDA-Public Use
  Company Number: US-GLAXOSMITHKLINE-A0770319A

PATIENT
  Age: 66 Year
  Sex: Female
  Weight: 61.4 kg

DRUGS (1)
  1. AVANDIA [Suspect]
     Indication: TYPE 2 DIABETES MELLITUS
     Dosage: 4MG PER DAY
     Route: 048
     Dates: start: 20020101, end: 20050101

REACTIONS (4)
  - MYOCARDIAL INFARCTION [None]
  - ANGINA PECTORIS [None]
  - RENAL DISORDER [None]
  - CORONARY ARTERY DISEASE [None]
